FAERS Safety Report 5138110-6 (Version None)
Quarter: 2006Q4

REPORT INFORMATION
  Report Type: 
  Country: None (occurrence: None)
  Receive Date: 20061030
  Receipt Date: 20060417
  Transmission Date: 20070319
  Serious: Yes (Disabling, Other)
  Sender: FDA-Public Use
  Company Number: US-GLAXOSMITHKLINE-A0601944A

PATIENT
  Age: 43 Year
  Sex: Male

DRUGS (4)
  1. ADVAIR HFA [Suspect]
     Indication: ASTHMA
     Route: 065
  2. FLOVENT [Suspect]
     Indication: ASTHMA
     Route: 065
  3. ALBUTEROL [Concomitant]
  4. ATROVENT [Concomitant]

REACTIONS (1)
  - ASTHMA [None]
